FAERS Safety Report 13277981 (Version 6)
Quarter: 2021Q3

REPORT INFORMATION
  Report Type: Spontaneous
  Country: US (occurrence: US)
  Receive Date: 20170228
  Receipt Date: 20210706
  Transmission Date: 20211014
  Serious: Yes (Hospitalization)
  Sender: FDA-Public Use
  Company Number: US-PFIZER INC-2017079099

PATIENT
  Age: 47 Year
  Sex: Male
  Weight: 86 kg

DRUGS (9)
  1. PENTASA [Concomitant]
     Active Substance: MESALAMINE
     Indication: CROHN^S DISEASE
     Dosage: 750 MG, 3X/DAY
     Route: 048
  2. SOMAVERT [Suspect]
     Active Substance: PEGVISOMANT
     Dosage: 15 MG, UNK
     Dates: start: 200403
  3. FLORASTOR [Concomitant]
     Active Substance: SACCHAROMYCES CEREVISIAE
     Dosage: UNK
  4. IBGARD [Concomitant]
     Active Substance: PEPPERMINT OIL
     Dosage: UNK
     Dates: end: 20170301
  5. SOMAVERT [Suspect]
     Active Substance: PEGVISOMANT
     Indication: ACROMEGALY
     Dosage: 15 MG, DAILY
     Route: 058
     Dates: start: 20030101
  6. SOMAVERT [Suspect]
     Active Substance: PEGVISOMANT
     Indication: BLOOD GROWTH HORMONE INCREASED
     Dosage: 15 MG, CYCLIC (5 DAYS ON AND 1 DAY OFF)
     Route: 058
     Dates: start: 2014
  7. TOCOTRIENOL [Concomitant]
     Dosage: UNK
  8. SOMAVERT [Suspect]
     Active Substance: PEGVISOMANT
     Dosage: 10 MG, DAILY
  9. LAURICIDIN [Concomitant]
     Dosage: UNK

REACTIONS (8)
  - Decreased appetite [Not Recovered/Not Resolved]
  - Off label use [Unknown]
  - Diarrhoea [Not Recovered/Not Resolved]
  - Myalgia [Not Recovered/Not Resolved]
  - Cardiac disorder [Unknown]
  - Hepatic enzyme increased [Recovered/Resolved]
  - Hypertension [Unknown]
  - Muscle atrophy [Not Recovered/Not Resolved]

NARRATIVE: CASE EVENT DATE: 200311
